FAERS Safety Report 7325682-6 (Version None)
Quarter: 2011Q1

REPORT INFORMATION
  Report Type: 
  Country: None (occurrence: None)
  Receive Date: 20110302
  Receipt Date: 20110224
  Transmission Date: 20110831
  Serious: Yes (Other)
  Sender: FDA-Public Use
  Company Number: FR-GENZYME-FLUD-1000750

PATIENT
  Age: 45 Year

DRUGS (4)
  1. CYCLOPHOSPHAMIDE [Suspect]
     Indication: STEM CELL TRANSPLANT
     Dosage: 50 MG/KG, QD ON DAY 6
     Route: 065
  2. CYCLOSPORINE [Concomitant]
     Indication: PROPHYLAXIS AGAINST GRAFT VERSUS HOST DISEASE
     Dosage: 100 MG, QD
     Route: 065
  3. FLUDARA [Suspect]
     Indication: STEM CELL TRANSPLANT
     Dosage: 40 MG/M2, QD FROM DAY 6 TO 2
     Route: 065
  4. MYCOPHENOLATE MOFETIL [Concomitant]
     Indication: PROPHYLAXIS AGAINST GRAFT VERSUS HOST DISEASE
     Dosage: UNK
     Route: 065

REACTIONS (6)
  - RENAL FAILURE ACUTE [None]
  - OEDEMA PERIPHERAL [None]
  - DYSPNOEA [None]
  - TRANSPLANT REJECTION [None]
  - GLOMERULONEPHRITIS MINIMAL LESION [None]
  - PLEURAL EFFUSION [None]
